FAERS Safety Report 9423528 (Version 1)
Quarter: 2013Q3

REPORT INFORMATION
  Report Type: Spontaneous
  Country: US (occurrence: US)
  Receive Date: 20130726
  Receipt Date: 20130726
  Transmission Date: 20140515
  Serious: No
  Sender: FDA-Public Use
  Company Number: US-BAXTER-2013BAX007108

PATIENT
  Age: 46 Year
  Sex: Male

DRUGS (1)
  1. PENICILLIN G POTASSIUM INJECTION, USP [Suspect]
     Indication: EAR INFECTION
     Dates: start: 1976

REACTIONS (2)
  - Fear of injection [Not Recovered/Not Resolved]
  - Pain [Unknown]
